FAERS Safety Report 8055625-1 (Version None)
Quarter: 2011Q4

REPORT INFORMATION
  Report Type: 
  Country: None (occurrence: None)
  Receive Date: 20111219
  Receipt Date: 20110223
  Transmission Date: 20120403
  Serious: Yes (Hospitalization)
  Sender: FDA-Public Use
  Company Number: WAES 1102USA03146

PATIENT

DRUGS (3)
  1. GLIPIZIDE [Concomitant]
  2. JANUVIA [Suspect]
     Indication: BLOOD GLUCOSE
     Dosage: 100 MG/DAILY/PO
     Route: 048
  3. METFORMIN HCL [Concomitant]

REACTIONS (1)
  - PANCREATITIS [None]
